FAERS Safety Report 9546804 (Version 1)
Quarter: 2013Q3

REPORT INFORMATION
  Report Type: Spontaneous
  Country: US (occurrence: US)
  Receive Date: 20130924
  Receipt Date: 20130924
  Transmission Date: 20140515
  Serious: No
  Sender: FDA-Public Use
  Company Number: US-009507513-1309USA002540

PATIENT
  Age: 40 Year
  Sex: Female
  Weight: 131.52 kg

DRUGS (3)
  1. NEXPLANON [Suspect]
     Indication: CONTRACEPTION
     Dosage: 1 DF, UNK
     Route: 059
     Dates: start: 20120718
  2. IMPLANON [Suspect]
     Route: 059
  3. PROTONIX [Concomitant]

REACTIONS (6)
  - Breast mass [Not Recovered/Not Resolved]
  - Nodule [Not Recovered/Not Resolved]
  - Mood swings [Not Recovered/Not Resolved]
  - Breast pain [Not Recovered/Not Resolved]
  - Weight increased [Not Recovered/Not Resolved]
  - Bone pain [Not Recovered/Not Resolved]
